FAERS Safety Report 11569062 (Version 1)
Quarter: 2015Q3

REPORT INFORMATION
  Report Type: Other
  Country: US (occurrence: US)
  Receive Date: 20150929
  Receipt Date: 20150929
  Transmission Date: 20151125
  Serious: Yes (Other)
  Sender: FDA-Public Use
  Company Number: US-DEP_12740_2015

PATIENT
  Sex: Female

DRUGS (5)
  1. HYDROCODEINE [Suspect]
     Active Substance: DIHYDROCODEINE PHOSPHATE
     Indication: PAIN
     Dosage: DF
  2. GRALISE [Suspect]
     Active Substance: GABAPENTIN
     Indication: PAIN IN EXTREMITY
     Dosage: SAMPLE PACK, TITRATED UP TO 900 MG, ONCE DAILY
     Route: 048
     Dates: start: 201509, end: 201509
  3. HYDROCODEINE [Suspect]
     Active Substance: DIHYDROCODEINE PHOSPHATE
     Indication: BACK PAIN
     Dosage: DF
  4. HYDROCODONE [Concomitant]
     Active Substance: HYDROCODONE
     Dosage: DF
  5. GRALISE [Suspect]
     Active Substance: GABAPENTIN
     Indication: OFF LABEL USE
     Dosage: SAMPLE PACK, TITRATED UP TO 900 MG, ONCE DAILY
     Route: 048
     Dates: start: 201509, end: 201509

REACTIONS (4)
  - Constipation [Recovered/Resolved]
  - Drug dose titration not performed [Recovered/Resolved]
  - Rectal haemorrhage [Recovered/Resolved]
  - Faecaloma [Recovered/Resolved]

NARRATIVE: CASE EVENT DATE: 201509
